FAERS Safety Report 25568591 (Version 1)
Quarter: 2025Q3

REPORT INFORMATION
  Report Type: Spontaneous
  Country: US (occurrence: US)
  Receive Date: 20250716
  Receipt Date: 20250716
  Transmission Date: 20251021
  Serious: No
  Sender: GALPHARM INTERNATIONAL
  Company Number: US-PERRIGO-24US011619

PATIENT
  Age: 71 Year
  Sex: Male
  Weight: 75.737 kg

DRUGS (1)
  1. MINOXIDIL [Suspect]
     Active Substance: MINOXIDIL
     Indication: Hair growth abnormal
     Dosage: 1 ML, BID
     Route: 061
     Dates: start: 20241105, end: 20241210

REACTIONS (3)
  - Application site rash [Recovering/Resolving]
  - Application site papules [Recovering/Resolving]
  - Product administered at inappropriate site [Unknown]

NARRATIVE: CASE EVENT DATE: 20241119
